FAERS Safety Report 14241718 (Version 5)
Quarter: 2018Q4

REPORT INFORMATION
  Report Type: Spontaneous
  Country: US (occurrence: US)
  Receive Date: 20171201
  Receipt Date: 20181025
  Transmission Date: 20190204
  Serious: No
  Sender: FDA-Public Use
  Company Number: US-BRISTOL-MYERS SQUIBB COMPANY-BMS-2017-108904

PATIENT
  Sex: Female
  Weight: 70.76 kg

DRUGS (1)
  1. ORENCIA [Suspect]
     Active Substance: ABATACEPT
     Indication: RHEUMATOID ARTHRITIS
     Dosage: 125 MG, QWK
     Route: 058
     Dates: start: 201312

REACTIONS (5)
  - Condition aggravated [Unknown]
  - Memory impairment [Unknown]
  - Gastrointestinal disorder [Unknown]
  - Product dose omission [Unknown]
  - Nasopharyngitis [Unknown]
